FAERS Safety Report 13967938 (Version 1)
Quarter: 2017Q3

REPORT INFORMATION
  Report Type: Spontaneous
  Country: GB (occurrence: GB)
  Receive Date: 20170914
  Receipt Date: 20170914
  Transmission Date: 20171128
  Serious: Yes (Other)
  Sender: FDA-Public Use
  Company Number: GB-ACCORD-058469

PATIENT
  Age: 91 Year
  Sex: Male
  Weight: 75 kg

DRUGS (9)
  1. METFORMIN [Concomitant]
     Active Substance: METFORMIN HYDROCHLORIDE
     Dosage: ONE WITH BREAKFAST, ONE WITH EVENING MEAL.
     Dates: start: 20161207, end: 20170619
  2. AMLODIPINE [Concomitant]
     Active Substance: AMLODIPINE BESYLATE
     Dates: start: 20170202, end: 20170619
  3. SENNA ALEXANDRINA [Concomitant]
     Active Substance: SENNA LEAF
     Dosage: TAKE 1 OR 2 AT NIGHT
     Dates: start: 20170706
  4. OXYBUTYNIN [Concomitant]
     Active Substance: OXYBUTYNIN
     Dates: start: 20161207
  5. RAMIPRIL. [Suspect]
     Active Substance: RAMIPRIL
     Indication: PRODUCT USED FOR UNKNOWN INDICATION
     Dates: start: 20161207
  6. ASPIRIN. [Concomitant]
     Active Substance: ASPIRIN
     Dates: start: 20161207
  7. ATENOLOL/ATENOLOL HYDROCHLORIDE [Concomitant]
     Dates: start: 20161207
  8. ATORVASTATIN [Concomitant]
     Active Substance: ATORVASTATIN
     Dosage: AT NIGHT.
     Dates: start: 20161207
  9. DOCUSATE [Concomitant]
     Active Substance: DOCUSATE
     Dosage: TAKE ONE 3 TIMES/DAY, OR AS DIRECTED
     Dates: start: 20170706

REACTIONS (1)
  - Glomerular filtration rate decreased [Recovered/Resolved]

NARRATIVE: CASE EVENT DATE: 20170823
